FAERS Safety Report 19454665 (Version 3)
Quarter: 2021Q3

REPORT INFORMATION
  Report Type: Spontaneous
  Country: US (occurrence: US)
  Receive Date: 20210623
  Receipt Date: 20210827
  Transmission Date: 20211014
  Serious: Yes (Other)
  Sender: FDA-Public Use
  Company Number: US-PFIZER INC-2020116591

PATIENT
  Age: 71 Year
  Sex: Female

DRUGS (1)
  1. LYRICA [Suspect]
     Active Substance: PREGABALIN
     Indication: PAIN
     Dosage: 100 MG, 1 CAPSULE QID (FOUR TIMES A DAY)
     Route: 048

REACTIONS (3)
  - Thrombosis [Unknown]
  - Confusional state [Unknown]
  - Myocardial infarction [Unknown]
